FAERS Safety Report 9917535 (Version 2)
Quarter: 2014Q2

REPORT INFORMATION
  Report Type: Spontaneous
  Country: US (occurrence: US)
  Receive Date: 20140221
  Receipt Date: 20140411
  Transmission Date: 20141212
  Serious: Yes (Other)
  Sender: FDA-Public Use
  Company Number: US-UCBSA-112663

PATIENT
  Age: 59 Year
  Sex: Female

DRUGS (1)
  1. KEPPRA [Suspect]
     Indication: CONVULSION
     Dosage: TAKING FOR 3 YEARS
     Route: 048

REACTIONS (1)
  - Squamous cell carcinoma [Recovering/Resolving]
